FAERS Safety Report 7365186-8 (Version None)
Quarter: 2011Q1

REPORT INFORMATION
  Report Type: 
  Country: None (occurrence: None)
  Receive Date: 20110321
  Receipt Date: 20110310
  Transmission Date: 20110831
  Serious: Yes (Hospitalization)
  Sender: FDA-Public Use
  Company Number: SG-BAYER-2011-021443

PATIENT
  Age: 55 Year
  Sex: Female

DRUGS (2)
  1. CIPRO XR [Suspect]
     Indication: PRODUCT USED FOR UNKNOWN INDICATION
     Dosage: UNK
  2. NAPROXEN SODIUM [Suspect]

REACTIONS (1)
  - ANGIOEDEMA [None]
